FAERS Safety Report 18643800 (Version 1)
Quarter: 2020Q4

REPORT INFORMATION
  Report Type: Spontaneous
  Country: IN (occurrence: IN)
  Receive Date: 20201221
  Receipt Date: 20201221
  Transmission Date: 20210114
  Serious: No
  Sender: FDA-Public Use
  Company Number: IN-LUPIN LIMITED-2020-05818

PATIENT
  Age: 51 Year
  Sex: Female

DRUGS (4)
  1. ISONIAZID. [Suspect]
     Active Substance: ISONIAZID
     Indication: EXTRAPULMONARY TUBERCULOSIS
     Dosage: UNK, QD
     Route: 065
  2. RIFAMPIN. [Suspect]
     Active Substance: RIFAMPIN
     Indication: EXTRAPULMONARY TUBERCULOSIS
     Dosage: UNK, QD
     Route: 065
  3. ETHAMBUTOL [Suspect]
     Active Substance: ETHAMBUTOL HYDROCHLORIDE
     Indication: EXTRAPULMONARY TUBERCULOSIS
     Dosage: 16 MILLIGRAM/KILOGRAM, QD (1375 MG)
     Route: 065
  4. PYRAZINAMIDE. [Suspect]
     Active Substance: PYRAZINAMIDE
     Indication: EXTRAPULMONARY TUBERCULOSIS
     Dosage: UNK, QD
     Route: 065

REACTIONS (3)
  - Arthralgia [Unknown]
  - Gastrointestinal disorder [Unknown]
  - Eye disorder [Unknown]
